FAERS Safety Report 20745986 (Version 2)
Quarter: 2022Q3

REPORT INFORMATION
  Report Type: Report from Study
  Country: US (occurrence: US)
  Receive Date: 20220425
  Receipt Date: 20220722
  Transmission Date: 20221027
  Serious: No
  Sender: FDA-Public Use
  Company Number: US-MIRM-000265

PATIENT
  Sex: Male

DRUGS (3)
  1. LIVMARLI [Suspect]
     Active Substance: MARALIXIBAT CHLORIDE
     Indication: Alagille syndrome
     Dosage: FULL DOSE STARTED ON 16APR2022
     Route: 048
     Dates: start: 20211208
  2. 1325420 (GLOBALC3Sep19): Cholestyramine [Concomitant]
     Indication: Product used for unknown indication
  3. 1328777 (GLOBALC3Sep19): Ursodiol [Concomitant]
     Indication: Product used for unknown indication

REACTIONS (6)
  - Abdominal pain upper [Recovering/Resolving]
  - Abdominal pain upper [Recovered/Resolved]
  - Diarrhoea [Unknown]
  - Bile acid malabsorption [Unknown]
  - Pruritus [Recovering/Resolving]
  - Abdominal discomfort [Recovering/Resolving]
